FAERS Safety Report 18990144 (Version 2)
Quarter: 2021Q2

REPORT INFORMATION
  Report Type: Report from Study
  Country: US (occurrence: US)
  Receive Date: 20210310
  Receipt Date: 20210411
  Transmission Date: 20210717
  Serious: No
  Sender: FDA-Public Use
  Company Number: US-JNJFOC-20210244935

PATIENT
  Age: 26 Year
  Sex: Male

DRUGS (8)
  1. STELARA [Suspect]
     Active Substance: USTEKINUMAB
  2. STELARA [Suspect]
     Active Substance: USTEKINUMAB
     Indication: CROHN^S DISEASE
     Dosage: UNKNOWN
     Route: 058
  3. STELARA [Suspect]
     Active Substance: USTEKINUMAB
  4. STELARA [Suspect]
     Active Substance: USTEKINUMAB
     Indication: CROHN^S DISEASE
     Route: 058
  5. STELARA [Suspect]
     Active Substance: USTEKINUMAB
  6. STELARA [Suspect]
     Active Substance: USTEKINUMAB
  7. STELARA [Suspect]
     Active Substance: USTEKINUMAB
  8. STELARA [Suspect]
     Active Substance: USTEKINUMAB

REACTIONS (3)
  - Accidental exposure to product [Unknown]
  - Product packaging issue [Unknown]
  - Product dose omission issue [Unknown]

NARRATIVE: CASE EVENT DATE: 20210225
